FAERS Safety Report 18868685 (Version 1)
Quarter: 2021Q1

REPORT INFORMATION
  Report Type: Spontaneous
  Country: CA (occurrence: CA)
  Receive Date: 20210209
  Receipt Date: 20210209
  Transmission Date: 20210420
  Serious: Yes (Other)
  Sender: FDA-Public Use
  Company Number: CA-GLAXOSMITHKLINE-CA2021GSK028458

PATIENT
  Age: 16 Year
  Sex: Female

DRUGS (2)
  1. VENTOLIN [Suspect]
     Active Substance: ALBUTEROL SULFATE
     Indication: ASTHMA
     Dosage: UNK
  2. ACETAMINOPHEN TABLET [Concomitant]
     Active Substance: ACETAMINOPHEN
     Indication: PRODUCT USED FOR UNKNOWN INDICATION
     Dosage: UNK

REACTIONS (11)
  - Respiratory alkalosis [Unknown]
  - Hypokalaemia [Unknown]
  - Overdose [Unknown]
  - Toxicity to various agents [Unknown]
  - Electrocardiogram QT prolonged [Unknown]
  - Supraventricular tachycardia [Recovering/Resolving]
  - Agitation [Unknown]
  - Lactic acidosis [Recovering/Resolving]
  - Altered state of consciousness [Unknown]
  - Metabolic acidosis [Unknown]
  - Sinus tachycardia [Unknown]
